FAERS Safety Report 7360297-5 (Version None)
Quarter: 2011Q1

REPORT INFORMATION
  Report Type: 
  Country: None (occurrence: None)
  Receive Date: 20110318
  Receipt Date: 20110307
  Transmission Date: 20110831
  Serious: Yes (Hospitalization)
  Sender: FDA-Public Use
  Company Number: JP-CELGENEUS-087-21880-11030999

PATIENT
  Sex: Female

DRUGS (1)
  1. REVLIMID [Suspect]
     Indication: SOMNOLENCE
     Dosage: 25 MILLIGRAM
     Route: 048
     Dates: start: 20110221

REACTIONS (1)
  - SOMNOLENCE [None]
